FAERS Safety Report 10434791 (Version 1)
Quarter: 2014Q3

REPORT INFORMATION
  Report Type: Spontaneous
  Country: US (occurrence: None)
  Receive Date: 20140815
  Receipt Date: 20140815
  Transmission Date: 20150326
  Serious: No
  Sender: FDA-Public Use
  Company Number: 2014TUS002516

PATIENT
  Age: 77 Year
  Sex: Male
  Weight: 68 kg

DRUGS (4)
  1. UNKNOWN [Suspect]
     Active Substance: UNSPECIFIED INGREDIENT
  2. ALL OTHER THERAPEUTIC PRODUCTS [Concomitant]
     Active Substance: UNSPECIFIED INGREDIENT
  3. PHENYTOIN. [Concomitant]
     Active Substance: PHENYTOIN
  4. BRINTELLIX [Suspect]
     Active Substance: VORTIOXETINE HYDROBROMIDE
     Indication: MAJOR DEPRESSION
     Route: 048
     Dates: start: 201403, end: 201403

REACTIONS (3)
  - Chills [None]
  - Vomiting [None]
  - Libido increased [None]

NARRATIVE: CASE EVENT DATE: 201403
